FAERS Safety Report 8547915 (Version 4)
Quarter: 2013Q2

REPORT INFORMATION
  Report Type: Spontaneous
  Country: US (occurrence: US)
  Receive Date: 20120504
  Receipt Date: 20130530
  Transmission Date: 20140414
  Serious: Yes (Other)
  Sender: FDA-Public Use
  Company Number: US-PFIZER INC-2012106151

PATIENT
  Sex: Female

DRUGS (2)
  1. PREMARIN [Suspect]
     Indication: HOT FLUSH
     Dosage: 0.3 G, UNK
     Dates: start: 2000
  2. PREMARIN [Suspect]
     Dosage: UNK

REACTIONS (5)
  - Road traffic accident [Unknown]
  - Limb injury [Unknown]
  - Cystitis [Unknown]
  - Hot flush [Unknown]
  - Stress [Unknown]
